FAERS Safety Report 8344419-5 (Version None)
Quarter: 2012Q2

REPORT INFORMATION
  Report Type: 
  Country: None (occurrence: None)
  Receive Date: 20120508
  Receipt Date: 20120504
  Transmission Date: 20120825
  Serious: Yes (Hospitalization)
  Sender: FDA-Public Use
  Company Number: US-BAYER-2011-018376

PATIENT
  Age: 22 Year
  Sex: Female
  Weight: 56.689 kg

DRUGS (3)
  1. IBUPROFEN [Concomitant]
     Dosage: 600 MG, PRN
     Dates: start: 20090301
  2. YAZ [Suspect]
     Indication: CONTRACEPTION
     Dosage: UNK
     Route: 048
     Dates: start: 20080901, end: 20090306
  3. YAZ [Suspect]
     Indication: ACNE

REACTIONS (1)
  - PULMONARY EMBOLISM [None]
